FAERS Safety Report 7507021-0 (Version None)
Quarter: 2011Q2

REPORT INFORMATION
  Report Type: 
  Country: None (occurrence: None)
  Receive Date: 20110526
  Receipt Date: 20110512
  Transmission Date: 20111010
  Serious: No
  Sender: FDA-Public Use
  Company Number: US-B.I. PHARMACEUTICALS,INC./RIDGEFIELD-2011-BP-12973BP

PATIENT
  Sex: Male

DRUGS (7)
  1. LUPRON [Concomitant]
     Indication: PROSTATIC DISORDER
  2. PRADAXA [Suspect]
     Indication: ATRIAL FIBRILLATION
     Dosage: 300 MG
     Route: 048
     Dates: start: 20110401, end: 20110505
  3. PRADAXA [Suspect]
     Dosage: 300 MG
     Route: 048
  4. POTASSIUM CHLORIDE [Concomitant]
     Indication: SUPPLEMENTATION THERAPY
  5. REQUIP [Concomitant]
     Indication: RESTLESS LEGS SYNDROME
  6. ADVAIR DISKUS 100/50 [Concomitant]
     Indication: CHRONIC OBSTRUCTIVE PULMONARY DISEASE
  7. NEURONTIN [Concomitant]
     Indication: NEUROPATHY PERIPHERAL

REACTIONS (3)
  - DYSPHAGIA [None]
  - CONTUSION [None]
  - PHARYNGEAL OEDEMA [None]
